FAERS Safety Report 9466163 (Version 1)
Quarter: 2013Q3

REPORT INFORMATION
  Report Type: Spontaneous
  Country: IT (occurrence: IT)
  Receive Date: 20130820
  Receipt Date: 20130820
  Transmission Date: 20140515
  Serious: Yes (Other)
  Sender: FDA-Public Use
  Company Number: IT-BAXTER-2013BAX032421

PATIENT
  Age: 45 Year
  Sex: Female

DRUGS (2)
  1. HOLOXAN [Suspect]
     Indication: NEOPLASM
     Dosage: 1 G/SQM
     Route: 065
  2. UROMITEXAN [Suspect]
     Indication: PRODUCT USED FOR UNKNOWN INDICATION
     Dosage: 1 G/SQM
     Route: 065

REACTIONS (1)
  - Disease progression [Unknown]
